FAERS Safety Report 6308557-0 (Version None)
Quarter: 2009Q3

REPORT INFORMATION
  Report Type: 
  Country: None (occurrence: None)
  Receive Date: 20090813
  Receipt Date: 20090803
  Transmission Date: 20100115
  Serious: Yes (Other)
  Sender: FDA-Public Use
  Company Number: US-ELI_LILLY_AND_COMPANY-US200908000595

PATIENT
  Sex: Female

DRUGS (2)
  1. FORTEO [Suspect]
     Indication: OSTEOPOROSIS
     Dosage: 20 UG, DAILY (1/D)
     Dates: start: 20090730, end: 20090731
  2. FORTEO [Suspect]
     Dates: start: 20090101

REACTIONS (13)
  - ABDOMINAL DISCOMFORT [None]
  - ABDOMINAL DISTENSION [None]
  - ANGER [None]
  - DECREASED ACTIVITY [None]
  - DECREASED APPETITE [None]
  - DRUG DOSE OMISSION [None]
  - MALAISE [None]
  - OVERDOSE [None]
  - PALPITATIONS [None]
  - POLLAKIURIA [None]
  - PRODUCT QUALITY ISSUE [None]
  - WEIGHT DECREASED [None]
  - WRONG TECHNIQUE IN DRUG USAGE PROCESS [None]
